FAERS Safety Report 8489744-2 (Version None)
Quarter: 2012Q3

REPORT INFORMATION
  Report Type: 
  Country: None (occurrence: None)
  Receive Date: 20120705
  Receipt Date: 20120626
  Transmission Date: 20120928
  Serious: Yes (Other)
  Sender: FDA-Public Use
  Company Number: PT-GLAXOSMITHKLINE-B0812106A

PATIENT
  Sex: Male

DRUGS (1)
  1. LAMOTRIGINE [Suspect]
     Indication: BIPOLAR II DISORDER
     Dosage: 12.5MG PER DAY
     Dates: start: 20070801

REACTIONS (8)
  - SKIN LESION [None]
  - DEAFNESS [None]
  - PRURITUS [None]
  - URINE ODOUR ABNORMAL [None]
  - ERYTHEMA [None]
  - CHROMATURIA [None]
  - VISUAL ACUITY REDUCED [None]
  - RASH [None]
